FAERS Safety Report 24364345 (Version 1)
Quarter: 2024Q3

REPORT INFORMATION
  Report Type: Other
  Country: GB (occurrence: GB)
  Receive Date: 20240926
  Receipt Date: 20240926
  Transmission Date: 20241017
  Serious: Yes (Other)
  Sender: STRIDES
  Company Number: None

PATIENT
  Age: 61 Year
  Sex: Male
  Weight: 81 kg

DRUGS (14)
  1. NAPROXEN [Suspect]
     Active Substance: NAPROXEN
     Indication: Ill-defined disorder
     Dosage: UNK
     Route: 048
     Dates: start: 20240911, end: 20240916
  2. NAPROXEN [Suspect]
     Active Substance: NAPROXEN
     Dosage: UNK (500 MG TABLETS)
     Route: 048
     Dates: start: 20240916
  3. BUTYLSCOPOLAMINE BROMIDE [Concomitant]
     Active Substance: BUTYLSCOPOLAMINE BROMIDE
     Indication: Ill-defined disorder
     Dosage: UNK (TAKE TWO UP TO 4 TIMES/DAY)
     Route: 065
     Dates: start: 20240819
  4. ATORVASTATIN [Concomitant]
     Active Substance: ATORVASTATIN
     Indication: Ill-defined disorder
     Dosage: UNK, AT BED TIME (TAKE ONE IN THE EVENING TO LOWER CHOLESTEROL LE...)
     Route: 065
     Dates: start: 20210209
  5. CANDESARTAN [Concomitant]
     Active Substance: CANDESARTAN
     Indication: Ill-defined disorder
     Dosage: UNK, OD (TAKE ONE ONCE DAILY)
     Route: 065
     Dates: start: 20180309
  6. POTASSIUM BICARBONATE\SODIUM ALGINATE [Concomitant]
     Active Substance: POTASSIUM BICARBONATE\SODIUM ALGINATE
     Indication: Ill-defined disorder
     Dosage: UNK, QID (5ML - 10ML 4 TIMES/DAY)
     Route: 065
     Dates: start: 20240520
  7. Sukkarto sr [Concomitant]
     Indication: Ill-defined disorder
     Dosage: UNK, QD (TAKE ONE DAILY AT TEATIME)
     Route: 065
     Dates: start: 20210507
  8. LANSOPRAZOLE [Concomitant]
     Active Substance: LANSOPRAZOLE
     Indication: Ill-defined disorder
     Dosage: UNK, BID (1 TO BE TAKEN TWICE DAILY)
     Route: 065
     Dates: start: 20180323
  9. ISPAGHULA EXTRACT\PSYLLIUM [Concomitant]
     Active Substance: HERBALS\PLANTAGO OVATA SEED\PLANTAGO SEED
     Indication: Ill-defined disorder
     Dosage: UNK, QD (USE ONE OR TWO SACHETS A DAY TO TREAT CONSTIPATION)
     Route: 065
     Dates: start: 20211223, end: 20240730
  10. MEBEVERINE HYDROCHLORIDE [Concomitant]
     Active Substance: MEBEVERINE HYDROCHLORIDE
     Indication: Ill-defined disorder
     Dosage: UNK, TID (TAKE ONE 3 TIMES/DAY)
     Route: 065
     Dates: start: 20211223, end: 20240730
  11. TAMSULOSIN HYDROCHLORIDE [Concomitant]
     Active Substance: TAMSULOSIN HYDROCHLORIDE
     Indication: Ill-defined disorder
     Dosage: UNK, QD (TAKE ONE DAILY)
     Route: 065
     Dates: start: 20221104
  12. CITALOPRAM [Concomitant]
     Active Substance: CITALOPRAM
     Indication: Ill-defined disorder
     Dosage: 1 DOSAGE FORM, OD (TAKE ONE TABLET ONCE DAILY)
     Route: 065
     Dates: start: 20230224, end: 20240730
  13. ACETAMINOPHEN [Concomitant]
     Active Substance: ACETAMINOPHEN
     Indication: Ill-defined disorder
     Dosage: UNK, QID (2 4 TIMES/DAY)
     Route: 065
     Dates: start: 20240718, end: 20240730
  14. AMITRIPTYLINE HYDROCHLORIDE [Concomitant]
     Active Substance: AMITRIPTYLINE HYDROCHLORIDE
     Indication: Ill-defined disorder
     Dosage: UNK, AT BED TIME (ONE AT NIGHT, INCREASE TO 2 AFTER 7-10 DAYS IF ...)
     Route: 065
     Dates: start: 20240823

REACTIONS (1)
  - Diarrhoea [Recovered/Resolved]

NARRATIVE: CASE EVENT DATE: 20240916
